FAERS Safety Report 14280686 (Version 1)
Quarter: 2017Q4

REPORT INFORMATION
  Report Type: Other
  Country: US (occurrence: US)
  Receive Date: 20171213
  Receipt Date: 20171213
  Transmission Date: 20180321
  Serious: Yes (Hospitalization)
  Sender: FDA-Public Use
  Company Number: US-UNITED THERAPEUTICS-UNT-2017-017210

PATIENT
  Age: 48 Year
  Sex: Female
  Weight: 62.59 kg

DRUGS (4)
  1. ORENITRAM [Suspect]
     Active Substance: TREPROSTINIL
     Indication: PULMONARY ARTERIAL HYPERTENSION
     Dosage: 7.25 MG, TID
     Route: 048
     Dates: start: 20140829
  2. ORENITRAM [Suspect]
     Active Substance: TREPROSTINIL
     Dosage: UNK
     Route: 048
  3. ORENITRAM [Suspect]
     Active Substance: TREPROSTINIL
     Dosage: UNK
     Route: 048
  4. REVATIO [Concomitant]
     Active Substance: SILDENAFIL CITRATE
     Indication: PRODUCT USED FOR UNKNOWN INDICATION
     Route: 065

REACTIONS (1)
  - Dyspnoea [Unknown]

NARRATIVE: CASE EVENT DATE: 20171130
